FAERS Safety Report 17444309 (Version 1)
Quarter: 2020Q1

REPORT INFORMATION
  Report Type: Spontaneous
  Country: US (occurrence: US)
  Receive Date: 20200207
  Receipt Date: 20200207
  Transmission Date: 20200409
  Serious: Yes (Other)
  Sender: FDA-Public Use
  Company Number: None

PATIENT
  Age: 47 Year
  Sex: Male
  Weight: 113 kg

DRUGS (4)
  1. COLCHICINE. [Concomitant]
     Active Substance: COLCHICINE
  2. ALLOPURINOL. [Concomitant]
     Active Substance: ALLOPURINOL
  3. TADALAFIL. [Concomitant]
     Active Substance: TADALAFIL
  4. SHENGJINGPIAN [DIETARY SUPPLEMENT] [Suspect]
     Active Substance: DIETARY SUPPLEMENT\HERBALS
     Indication: ERECTILE DYSFUNCTION

REACTIONS (1)
  - Haematuria [None]

NARRATIVE: CASE EVENT DATE: 20200207
